FAERS Safety Report 16508315 (Version 1)
Quarter: 2019Q3

REPORT INFORMATION
  Report Type: Spontaneous
  Country: US (occurrence: US)
  Receive Date: 20190701
  Receipt Date: 20190701
  Transmission Date: 20191004
  Serious: Yes (Other)
  Sender: FDA-Public Use
  Company Number: US-ALLERGAN-1926650US

PATIENT

DRUGS (4)
  1. NAC [Suspect]
     Active Substance: ACETYLCYSTEINE
     Indication: HEPATITIS ALCOHOLIC
     Dosage: (DAY 1:150, 50, AND 100 MG/KG OVER
     Route: 042
  2. PREDNISOLONE. [Suspect]
     Active Substance: PREDNISOLONE
     Indication: HEPATITIS ALCOHOLIC
     Dosage: 40 MG, QD
     Route: 065
  3. VITAMIN E [Suspect]
     Active Substance: .ALPHA.-TOCOPHEROL
     Indication: HEPATITIS ALCOHOLIC
     Dosage: 400 IU, BID
     Route: 065
  4. URSODEOXYCHOLIC ACID UNK [Suspect]
     Active Substance: URSODIOL
     Indication: HEPATITIS ALCOHOLIC
     Dosage: 300 MG, BID
     Route: 065

REACTIONS (2)
  - Clostridium difficile infection [Unknown]
  - Off label use [Unknown]
